FAERS Safety Report 5935690-5 (Version None)
Quarter: 2008Q4

REPORT INFORMATION
  Report Type: 
  Country: None (occurrence: None)
  Receive Date: 20081030
  Receipt Date: 20081021
  Transmission Date: 20090506
  Serious: Yes (Other)
  Sender: FDA-Public Use
  Company Number: JP-TYCO HEALTHCARE/MALLINCKRODT-T200801658

PATIENT

DRUGS (4)
  1. OPTIRAY 300 [Suspect]
     Indication: COMPUTERISED TOMOGRAM
     Dosage: 100 ML, SINGLE
     Route: 042
     Dates: start: 20081007, end: 20081007
  2. CILNIDIPINE [Concomitant]
     Indication: HYPERTENSION
     Dosage: 10 MG, BID
     Route: 048
     Dates: start: 19980307
  3. LOSARTAN POTASSIUM AND HYDROCHLOROTHIAZIDE [Concomitant]
     Indication: HYPERTENSION
     Dosage: 1 TAB, QD
     Route: 048
  4. TICLOPIDINE HCL [Concomitant]
     Indication: CEREBRAL INFARCTION
     Dosage: 100 MG, QD
     Route: 048

REACTIONS (4)
  - COLD SWEAT [None]
  - COUGH [None]
  - GENERALISED ERYTHEMA [None]
  - SHOCK [None]
